FAERS Safety Report 19479991 (Version 1)
Quarter: 2021Q2

REPORT INFORMATION
  Report Type: Spontaneous
  Country: CN (occurrence: CN)
  Receive Date: 20210630
  Receipt Date: 20210630
  Transmission Date: 20210717
  Serious: Yes (Hospitalization)
  Sender: FDA-Public Use
  Company Number: CN-ELI_LILLY_AND_COMPANY-CN202106010791

PATIENT
  Age: 72 Year
  Sex: Female
  Weight: 60 kg

DRUGS (2)
  1. HUMALOG MIX75/25 [Suspect]
     Active Substance: INSULIN LISPRO
     Indication: DIABETES MELLITUS
     Dosage: 18 U, 2/W (MORNING AND EVENING)
     Route: 058
     Dates: start: 2013
  2. HUMALOG MIX75/25 [Suspect]
     Active Substance: INSULIN LISPRO
     Dosage: 18 U, 2/W (MORNING AND EVENING)
     Route: 058
     Dates: start: 2013

REACTIONS (2)
  - Body height decreased [Unknown]
  - Cataract [Unknown]
